FAERS Safety Report 5621590-7 (Version None)
Quarter: 2008Q1

REPORT INFORMATION
  Report Type: 
  Country: None (occurrence: None)
  Receive Date: 20080206
  Receipt Date: 20080129
  Transmission Date: 20080703
  Serious: Yes (Death)
  Sender: FDA-Public Use
  Company Number: JPI-P-002951

PATIENT
  Age: 36 Year
  Sex: Male

DRUGS (2)
  1. XYREM [Suspect]
     Indication: NARCOLEPSY
     Dosage: ORAL
     Route: 048
  2. UNSPECIFIED ANTIDEPRESSANT(ANTIDEPRESSANTS) [Concomitant]

REACTIONS (1)
  - DEATH [None]
